FAERS Safety Report 15767844 (Version 1)
Quarter: 2018Q4

REPORT INFORMATION
  Report Type: Report from Study
  Country: IT (occurrence: IT)
  Receive Date: 20181227
  Receipt Date: 20181227
  Transmission Date: 20190205
  Serious: Yes (Other)
  Sender: FDA-Public Use
  Company Number: IT-MYLANLABS-2018M1095585

PATIENT
  Age: 11 Month
  Sex: Female

DRUGS (2)
  1. IBUPROFEN. [Suspect]
     Active Substance: IBUPROFEN
     Indication: PYREXIA
     Dosage: 120 MILLIGRAM, QD
     Route: 054
     Dates: start: 20180509, end: 20180509
  2. PARACETAMOL [Concomitant]
     Active Substance: ACETAMINOPHEN
     Dosage: 125 MILLIGRAM
     Route: 054
     Dates: start: 20180509, end: 20180509

REACTIONS (1)
  - Hypothermia [Recovering/Resolving]

NARRATIVE: CASE EVENT DATE: 20180510
